FAERS Safety Report 8479483-6 (Version None)
Quarter: 2012Q2

REPORT INFORMATION
  Report Type: 
  Country: None (occurrence: None)
  Receive Date: 20120629
  Receipt Date: 20120621
  Transmission Date: 20120825
  Serious: Yes (Hospitalization)
  Sender: FDA-Public Use
  Company Number: US-US-EMD SERONO, INC.-7142924

PATIENT
  Sex: Female

DRUGS (3)
  1. REBIF [Suspect]
     Indication: MULTIPLE SCLEROSIS
     Dates: start: 20120418
  2. REBIF [Suspect]
     Route: 058
     Dates: end: 20120601
  3. REBIF [Suspect]
     Route: 058

REACTIONS (6)
  - DEAFNESS UNILATERAL [None]
  - DIZZINESS [None]
  - FATIGUE [None]
  - INAPPROPRIATE SCHEDULE OF DRUG ADMINISTRATION [None]
  - CENTRAL NERVOUS SYSTEM LESION [None]
  - VOMITING [None]
